FAERS Safety Report 7522017-0 (Version None)
Quarter: 2011Q2

REPORT INFORMATION
  Report Type: 
  Country: None (occurrence: None)
  Receive Date: 20110603
  Receipt Date: 20110523
  Transmission Date: 20111010
  Serious: Yes (Hospitalization, Disabling, Other)
  Sender: FDA-Public Use
  Company Number: PHHY2011SA45693

PATIENT
  Age: 27 Year
  Sex: Male

DRUGS (1)
  1. DICLOFENAC SODIUM [Suspect]
     Dosage: 75 MG, UNK

REACTIONS (6)
  - OEDEMA PERIPHERAL [None]
  - LOCALISED OEDEMA [None]
  - RENAL DISORDER [None]
  - OVERWEIGHT [None]
  - GENERALISED OEDEMA [None]
  - MOVEMENT DISORDER [None]
